FAERS Safety Report 18223948 (Version 3)
Quarter: 2020Q4

REPORT INFORMATION
  Report Type: Spontaneous
  Country: ES (occurrence: ES)
  Receive Date: 20200902
  Receipt Date: 20201230
  Transmission Date: 20210113
  Serious: Yes (Other)
  Sender: FDA-Public Use
  Company Number: NVSC2020ES240413

PATIENT
  Age: 25 Year

DRUGS (4)
  1. PREDNISONE. [Concomitant]
     Active Substance: PREDNISONE
     Dosage: BEFORE BIOLOGIC INITIATION: MEAN MAX DOSE OF 53.7 +/- 17.7 MG/DAY
     Route: 048
  2. METHOTREXATE. [Suspect]
     Active Substance: METHOTREXATE
     Indication: OPTIC NEURITIS
     Dosage: MAX DOSE (MG/SC OR PO/WEEK): 25 MG, QW
     Route: 065
  3. INFLIXIMAB [Suspect]
     Active Substance: INFLIXIMAB
     Indication: OPTIC NEURITIS
     Dosage: 5 MG/KG AT 0, 2 AND 6 WEEKS AND THEN EVERY 8 WEEKS
     Route: 042
  4. PREDNISONE. [Concomitant]
     Active Substance: PREDNISONE
     Indication: OPTIC NEURITIS
     Dosage: MAX DOSE (MG/DAY): 60
     Route: 048

REACTIONS (6)
  - Tachyphylaxis [Unknown]
  - Drug effective for unapproved indication [Unknown]
  - Optic neuritis [Unknown]
  - Off label use [Unknown]
  - Drug specific antibody [Unknown]
  - Product use in unapproved indication [Unknown]
